FAERS Safety Report 15952576 (Version 2)
Quarter: 2019Q1

REPORT INFORMATION
  Report Type: Spontaneous
  Country: BR (occurrence: BR)
  Receive Date: 20190212
  Receipt Date: 20190213
  Transmission Date: 20190417
  Serious: No
  Sender: FDA-Public Use
  Company Number: BR-009507513-1902BRA003599

PATIENT
  Sex: Female
  Weight: 75 kg

DRUGS (3)
  1. JANUMET [Suspect]
     Active Substance: METFORMIN HYDROCHLORIDE\SITAGLIPTIN PHOSPHATE
     Dosage: SPLITTING THE TABLET IN 2 BEFORE ADMINISTERING IT
     Route: 048
     Dates: start: 20190122, end: 20190203
  2. JANUMET [Suspect]
     Active Substance: METFORMIN HYDROCHLORIDE\SITAGLIPTIN PHOSPHATE
     Dosage: 2 TABLETS PER DAY
     Route: 048
     Dates: start: 20190206
  3. JANUMET [Suspect]
     Active Substance: METFORMIN HYDROCHLORIDE\SITAGLIPTIN PHOSPHATE
     Indication: TYPE 2 DIABETES MELLITUS
     Dosage: 2 TABLETS PER DAY
     Route: 048
     Dates: start: 2017, end: 20190122

REACTIONS (16)
  - Hyperhidrosis [Not Recovered/Not Resolved]
  - Asthenia [Unknown]
  - Arthralgia [Not Recovered/Not Resolved]
  - Wrong technique in product usage process [Unknown]
  - Pain in extremity [Not Recovered/Not Resolved]
  - Depression [Unknown]
  - Blood cholesterol increased [Not Recovered/Not Resolved]
  - Malaise [Unknown]
  - Retching [Recovered/Resolved]
  - Blood glucose increased [Not Recovered/Not Resolved]
  - Vomiting [Unknown]
  - Poor quality product administered [Unknown]
  - Nervous system disorder [Not Recovered/Not Resolved]
  - General physical condition abnormal [Unknown]
  - Fatigue [Unknown]
  - Product quality issue [Not Recovered/Not Resolved]

NARRATIVE: CASE EVENT DATE: 201811
